FAERS Safety Report 8201487-9 (Version None)
Quarter: 2012Q1

REPORT INFORMATION
  Report Type: 
  Country: None (occurrence: None)
  Receive Date: 20120307
  Receipt Date: 20120221
  Transmission Date: 20120608
  Serious: Yes (Other)
  Sender: FDA-Public Use
  Company Number: THQ2012A01725

PATIENT
  Age: 72 Year
  Sex: Male

DRUGS (5)
  1. AMARYL [Concomitant]
  2. DIOVAN [Concomitant]
  3. ATENOLOL [Concomitant]
  4. PIOGLITAZONE HYDROCHLORIDE [Suspect]
     Indication: HYPOGLYCAEMIA
     Dosage: 15 MG (1 D)
     Route: 048
     Dates: start: 20040101, end: 20120210
  5. NORVASC [Concomitant]

REACTIONS (1)
  - BLADDER CANCER [None]
